FAERS Safety Report 5221192-0 (Version None)
Quarter: 2007Q1

REPORT INFORMATION
  Report Type: 
  Country: None (occurrence: None)
  Receive Date: 20070126
  Receipt Date: 20070123
  Transmission Date: 20070707
  Serious: Yes (Other)
  Sender: FDA-Public Use
  Company Number: TH-ROXANE LABORATORIES, INC-2007-BP-01017RO

PATIENT
  Age: 35 Year
  Sex: Female

DRUGS (2)
  1. DEXAMETHASONE TAB [Suspect]
     Indication: MATERNAL THERAPY TO ENHANCE FOETAL LUNG MATURITY
  2. TERBUTALINE SULFATE [Suspect]
     Indication: PREMATURE LABOUR
     Route: 042

REACTIONS (1)
  - STILLBIRTH [None]
